FAERS Safety Report 7343698-0 (Version None)
Quarter: 2011Q1

REPORT INFORMATION
  Report Type: 
  Country: None (occurrence: None)
  Receive Date: 20110310
  Receipt Date: 20101103
  Transmission Date: 20110831
  Serious: No
  Sender: FDA-Public Use
  Company Number: A0890504A

PATIENT
  Age: 47 Year
  Sex: Male

DRUGS (1)
  1. NICORETTE [Suspect]
     Dates: start: 20101008

REACTIONS (6)
  - SNEEZING [None]
  - RHINORRHOEA [None]
  - NASAL CONGESTION [None]
  - ERYTHEMA [None]
  - EPISTAXIS [None]
  - NASAL OEDEMA [None]
